APPROVED DRUG PRODUCT: DIPYRIDAMOLE
Active Ingredient: DIPYRIDAMOLE
Strength: 50MG
Dosage Form/Route: TABLET;ORAL
Application: A086944 | Product #001
Applicant: ANI PHARMACEUTICALS INC
Approved: Feb 25, 1992 | RLD: No | RS: No | Type: DISCN